FAERS Safety Report 5511310-9 (Version None)
Quarter: 2007Q4

REPORT INFORMATION
  Report Type: 
  Country: None (occurrence: None)
  Receive Date: 20071109
  Receipt Date: 20070813
  Transmission Date: 20080405
  Serious: No
  Sender: FDA-Public Use
  Company Number: A0670760A

PATIENT
  Age: 9 Year
  Sex: Female

DRUGS (2)
  1. ALTABAX [Suspect]
     Indication: INFECTION
     Route: 061
     Dates: start: 20070101
  2. CEPHALEXIN [Concomitant]
     Indication: INFECTION

REACTIONS (2)
  - IMPAIRED HEALING [None]
  - THERAPEUTIC RESPONSE UNEXPECTED [None]
